FAERS Safety Report 10307998 (Version 3)
Quarter: 2014Q3

REPORT INFORMATION
  Report Type: Spontaneous
  Country: GB (occurrence: GB)
  Receive Date: 20140716
  Receipt Date: 20140914
  Transmission Date: 20150326
  Serious: Yes (Other)
  Sender: FDA-Public Use
  Company Number: GB-ABBVIE-14P-167-1258406-00

PATIENT
  Age: 27 Year
  Sex: Female
  Weight: 73.1 kg

DRUGS (6)
  1. HUMIRA [Suspect]
     Active Substance: ADALIMUMAB
     Indication: DISABILITY
     Route: 058
     Dates: start: 20140501, end: 20140501
  2. ACETAZOLAMIDE. [Suspect]
     Active Substance: ACETAZOLAMIDE
     Indication: PRODUCT USED FOR UNKNOWN INDICATION
  3. COCODAMOL [Concomitant]
     Active Substance: ACETAMINOPHEN\CODEINE PHOSPHATE
     Indication: ANALGESIC THERAPY
     Route: 048
  4. HUMIRA [Suspect]
     Active Substance: ADALIMUMAB
     Indication: ANKYLOSING SPONDYLITIS
     Route: 058
     Dates: start: 20130315, end: 201310
  5. HUMIRA [Suspect]
     Active Substance: ADALIMUMAB
     Route: 058
     Dates: start: 201405, end: 201405
  6. ACETAZOLAMIDE. [Suspect]
     Active Substance: ACETAZOLAMIDE

REACTIONS (25)
  - Headache [Unknown]
  - Headache [Unknown]
  - Eye disorder [Unknown]
  - Benign intracranial hypertension [Recovered/Resolved]
  - Pain [Unknown]
  - Vision blurred [Unknown]
  - Posture abnormal [Unknown]
  - Headache [Unknown]
  - Vein disorder [Unknown]
  - Headache [Unknown]
  - Benign intracranial hypertension [Unknown]
  - Papilloedema [Not Recovered/Not Resolved]
  - Refraction disorder [Unknown]
  - Vision blurred [Unknown]
  - Weight increased [Unknown]
  - Visual impairment [Unknown]
  - Abdominal distension [Unknown]
  - Decreased appetite [Unknown]
  - Fundoscopy abnormal [Unknown]
  - Headache [Unknown]
  - Paraesthesia [Not Recovered/Not Resolved]
  - Post lumbar puncture syndrome [Unknown]
  - Papilloedema [Unknown]
  - Weight decreased [Unknown]
  - Vision blurred [Unknown]

NARRATIVE: CASE EVENT DATE: 201307
